FAERS Safety Report 14829983 (Version 1)
Quarter: 2018Q2

REPORT INFORMATION
  Report Type: Spontaneous
  Country: DE (occurrence: DE)
  Receive Date: 20180430
  Receipt Date: 20180430
  Transmission Date: 20180711
  Serious: Yes (Hospitalization)
  Sender: FDA-Public Use
  Company Number: DE-EDENBRIDGE PHARMACEUTICALS, LLC-DE-2018EDE000075

PATIENT
  Age: 27 Year
  Sex: Female

DRUGS (2)
  1. PREDNISOLONE SODIUM PHOSPHATE. [Suspect]
     Active Substance: PREDNISOLONE SODIUM PHOSPHATE
     Indication: CROHN^S DISEASE
     Dosage: 30 MG, UNK
     Route: 065
  2. PREDNISOLONE SODIUM PHOSPHATE. [Suspect]
     Active Substance: PREDNISOLONE SODIUM PHOSPHATE
     Dosage: 50 MG, UNK
     Route: 065

REACTIONS (1)
  - Osteomyelitis salmonella [Recovered/Resolved]
